FAERS Safety Report 24764374 (Version 4)
Quarter: 2025Q2

REPORT INFORMATION
  Report Type: Report from Study
  Country: CA (occurrence: CA)
  Receive Date: 20241223
  Receipt Date: 20250418
  Transmission Date: 20250717
  Serious: Yes (Hospitalization, Other)
  Sender: UCB
  Company Number: CA-UCBSA-2024065989

PATIENT
  Sex: Female

DRUGS (4)
  1. BIMEKIZUMAB [Suspect]
     Active Substance: BIMEKIZUMAB
     Indication: Hidradenitis
     Route: 058
     Dates: start: 20241212
  2. BIMEKIZUMAB [Suspect]
     Active Substance: BIMEKIZUMAB
     Indication: Off label use
     Dosage: 320 MILLIGRAM, EV 2 WEEKS(QOW)
     Route: 058
  3. COSENTYX [Concomitant]
     Active Substance: SECUKINUMAB
     Indication: Product used for unknown indication
  4. MORPHINE [Concomitant]
     Active Substance: MORPHINE
     Indication: Product used for unknown indication

REACTIONS (7)
  - Hip fracture [Unknown]
  - Hip surgery [Unknown]
  - Wound [Unknown]
  - Fall [Unknown]
  - COVID-19 [Unknown]
  - Off label use [Unknown]
  - Overdose [Unknown]

NARRATIVE: CASE EVENT DATE: 20240101
